FAERS Safety Report 5595064-6 (Version None)
Quarter: 2008Q1

REPORT INFORMATION
  Report Type: 
  Country: None (occurrence: None)
  Receive Date: 20080117
  Receipt Date: 20080109
  Transmission Date: 20080703
  Serious: Yes (Hospitalization, Other)
  Sender: FDA-Public Use
  Company Number: FR-TYCO HEALTHCARE/MALLINCKRODT-T200701613

PATIENT

DRUGS (3)
  1. TRAMADOL HCL [Suspect]
     Dosage: 200 MG, QD (SLOW RELEASE TREATMENT)
  2. IRBESARTAN [Concomitant]
     Dosage: 75 MG, QD
  3. IRBESARTAN [Concomitant]

REACTIONS (2)
  - HYPONATRAEMIA [None]
  - INAPPROPRIATE ANTIDIURETIC HORMONE SECRETION [None]
